FAERS Safety Report 4825361-0 (Version None)
Quarter: 2005Q4

REPORT INFORMATION
  Report Type: 
  Country: None (occurrence: None)
  Receive Date: 20051111
  Receipt Date: 20051031
  Transmission Date: 20060501
  Serious: Yes (Other)
  Sender: FDA-Public Use
  Company Number: US-ROCHE-423348

PATIENT
  Age: 64 Year
  Sex: Female
  Weight: 97.5 kg

DRUGS (2)
  1. KLONOPIN [Suspect]
     Route: 048
     Dates: start: 20051018, end: 20051031
  2. AVALIDE [Concomitant]
     Route: 048

REACTIONS (4)
  - BLOOD PRESSURE INCREASED [None]
  - GRAND MAL CONVULSION [None]
  - HEADACHE [None]
  - VISION BLURRED [None]
